FAERS Safety Report 9050334 (Version 1)
Quarter: 2013Q1

REPORT INFORMATION
  Report Type: Spontaneous
  Country: IE (occurrence: IE)
  Receive Date: 20130205
  Receipt Date: 20130205
  Transmission Date: 20140127
  Serious: Yes (Hospitalization, Other)
  Sender: FDA-Public Use
  Company Number: PHFR2012IE005007

PATIENT
  Age: 62 None
  Sex: Male

DRUGS (5)
  1. CLOZARIL [Suspect]
     Indication: SCHIZOPHRENIA
     Dosage: 350 MG DAILY
     Route: 048
     Dates: start: 20120726, end: 20120919
  2. AMLODIPINE [Concomitant]
     Indication: HYPERTENSION
     Dosage: 5 MG
     Route: 048
  3. LAMOTRIGINE [Concomitant]
     Indication: MOOD ALTERED
     Dosage: 100 MG (NOCTE)
     Route: 048
  4. DIAZEPAM [Concomitant]
     Indication: DRUG ABUSE
     Dosage: 30 MG
     Route: 048
     Dates: start: 201206
  5. DIAZEPAM [Concomitant]
     Dosage: 10 MG, TDS

REACTIONS (6)
  - Neutropenic sepsis [Recovered/Resolved]
  - Neutrophil count decreased [Recovered/Resolved]
  - White blood cell count decreased [Recovered/Resolved]
  - Lymphocyte count decreased [Unknown]
  - Neutrophil count increased [Unknown]
  - White blood cell count increased [Unknown]
